FAERS Safety Report 12814771 (Version 1)
Quarter: 2016Q4

REPORT INFORMATION
  Report Type: Report from Study
  Country: US (occurrence: US)
  Receive Date: 20161006
  Receipt Date: 20161006
  Transmission Date: 20170207
  Serious: No
  Sender: FDA-Public Use
  Company Number: US-AMGEN-USASL2016101072

PATIENT
  Age: 74 Year
  Sex: Female

DRUGS (3)
  1. PROLIA [Suspect]
     Active Substance: DENOSUMAB
     Indication: OSTEOPOROSIS
     Dosage: 60 MG, Q6MO
     Route: 065
     Dates: start: 2014
  2. MOBIC [Concomitant]
     Active Substance: MELOXICAM
     Dosage: UNK UNK, AS NECESSARY
  3. SIMVASTATIN. [Concomitant]
     Active Substance: SIMVASTATIN
     Dosage: 40 MG, QD

REACTIONS (2)
  - Drug effect incomplete [Unknown]
  - Bronchitis [Recovered/Resolved]
